FAERS Safety Report 18205629 (Version 2)
Quarter: 2021Q2

REPORT INFORMATION
  Report Type: Spontaneous
  Country: US (occurrence: US)
  Receive Date: 20200827
  Receipt Date: 20210507
  Transmission Date: 20210717
  Serious: Yes (Other)
  Sender: FDA-Public Use
  Company Number: US-BAUSCH-BL-2020-024050

PATIENT
  Age: 55 Year
  Sex: Male
  Weight: 68.04 kg

DRUGS (5)
  1. LEVETIRACETAM. [Suspect]
     Active Substance: LEVETIRACETAM
     Indication: SEIZURE
     Route: 048
     Dates: start: 201902
  2. TIMOLOL MALEATE. [Concomitant]
     Active Substance: TIMOLOL MALEATE
     Indication: GLAUCOMA
     Dosage: 1 DROP IN EACH EYE EVERY MORNING
     Route: 047
  3. LEVETIRACETAM. [Suspect]
     Active Substance: LEVETIRACETAM
     Dosage: DOSE INCREASED (2 TABLETS BY MOUTH)
     Route: 048
     Dates: start: 201902
  4. CARBAMAZEPINE. [Suspect]
     Active Substance: CARBAMAZEPINE
     Indication: SEIZURE
     Dosage: 1.5 TABLETS BY MOUTH TWICE PER DAY (300MG EACH DOSE)?STARTED IN FEB OR MAR/2019
     Route: 048
     Dates: start: 2019
  5. LATANOPROST OPHTHALMIC SOLUTION 0.005% [Suspect]
     Active Substance: LATANOPROST
     Indication: GLAUCOMA
     Dosage: 1 DROP IN EACH EYE BEFORE BED
     Route: 047

REACTIONS (8)
  - Seizure [Unknown]
  - Psychomotor hyperactivity [Unknown]
  - Impaired work ability [Unknown]
  - Glaucoma [Unknown]
  - Anxiety [Recovering/Resolving]
  - Condition aggravated [Unknown]
  - Confusional state [Unknown]
  - Hallucination [Unknown]

NARRATIVE: CASE EVENT DATE: 201902
